FAERS Safety Report 17681575 (Version 2)
Quarter: 2020Q2

REPORT INFORMATION
  Report Type: Spontaneous
  Country: BR (occurrence: BR)
  Receive Date: 20200417
  Receipt Date: 20200428
  Transmission Date: 20200714
  Serious: Yes (Other)
  Sender: FDA-Public Use
  Company Number: BR-009507513-2004BRA003385

PATIENT
  Age: 31 Year
  Sex: Female
  Weight: 57 kg

DRUGS (3)
  1. IMPLANON NXT [Suspect]
     Active Substance: ETONOGESTREL
     Indication: MIGRAINE
     Dosage: 1 IMPLANT, EVERY 3 YEARS
     Route: 059
     Dates: start: 20190926
  2. IMPLANON NXT [Suspect]
     Active Substance: ETONOGESTREL
     Indication: FAMILIAL RISK FACTOR
  3. IMPLANON NXT [Suspect]
     Active Substance: ETONOGESTREL
     Indication: BENIGN BREAST NEOPLASM

REACTIONS (5)
  - Abnormal weight gain [Not Recovered/Not Resolved]
  - Product prescribing issue [Unknown]
  - Product use in unapproved indication [Unknown]
  - Dermatitis allergic [Not Recovered/Not Resolved]
  - Migraine [Not Recovered/Not Resolved]

NARRATIVE: CASE EVENT DATE: 20190926
